FAERS Safety Report 5997546-1 (Version None)
Quarter: 2008Q4

REPORT INFORMATION
  Report Type: 
  Country: None (occurrence: None)
  Receive Date: 20081212
  Receipt Date: 20081113
  Transmission Date: 20090506
  Serious: No
  Sender: FDA-Public Use
  Company Number: US-ABBOTT-08P-163-0488045-00

PATIENT
  Sex: Male
  Weight: 63.56 kg

DRUGS (7)
  1. HUMIRA [Suspect]
     Indication: ANKYLOSING SPONDYLITIS
     Route: 058
     Dates: start: 20080813
  2. METHOTREXATE [Concomitant]
     Indication: PSORIASIS
     Dosage: 6-8PILLS PER WEEK
     Route: 048
     Dates: start: 20080301
  3. METHOTREXATE [Concomitant]
     Indication: ANKYLOSING SPONDYLITIS
  4. FENTANYL TRANSDERMAL SYSTEM [Concomitant]
     Indication: ANKYLOSING SPONDYLITIS
     Route: 061
  5. CYCLOSPORINE [Concomitant]
     Indication: PSORIASIS
     Dosage: NOT REPORTED
     Dates: start: 20080301
  6. FLECTOR [Concomitant]
     Indication: ANKYLOSING SPONDYLITIS
     Dosage: NOT REPORTED
     Route: 061
  7. PERCOCET [Concomitant]
     Indication: ANKYLOSING SPONDYLITIS
     Route: 048

REACTIONS (2)
  - DRUG INEFFECTIVE [None]
  - PAIN [None]
